FAERS Safety Report 6279848-7 (Version None)
Quarter: 2009Q3

REPORT INFORMATION
  Report Type: 
  Country: None (occurrence: None)
  Receive Date: 20090723
  Receipt Date: 20090713
  Transmission Date: 20100115
  Serious: Yes (Other)
  Sender: FDA-Public Use
  Company Number: PHHY2009CA27098

PATIENT
  Sex: Female
  Weight: 135 kg

DRUGS (6)
  1. ZOMETA [Suspect]
     Indication: METASTASES TO BONE
     Dosage: 4 MG, QMO
     Dates: start: 20071105
  2. ZOMETA [Suspect]
     Dosage: 4 MG, QMO
     Route: 042
     Dates: start: 20071203
  3. ZOMETA [Suspect]
     Dosage: 4 MG, QMO
     Route: 042
     Dates: start: 20071231
  4. PAMIDRONATE DISODIUM [Suspect]
     Dosage: UNK
     Dates: start: 20080128
  5. PAMIDRONATE DISODIUM [Suspect]
     Dosage: UNK
     Dates: start: 20080225
  6. PAMIDRONATE DISODIUM [Suspect]
     Dosage: UNK
     Dates: start: 20080326

REACTIONS (5)
  - BONE DISORDER [None]
  - ERYTHEMA [None]
  - OSTEONECROSIS [None]
  - PAIN [None]
  - SWELLING [None]
